FAERS Safety Report 4265757-1 (Version None)
Quarter: 2004Q1

REPORT INFORMATION
  Report Type: 
  Country: None (occurrence: None)
  Receive Date: 20040107
  Receipt Date: 20040107
  Transmission Date: 20041129
  Serious: Yes (Life-Threatening, Disabling)
  Sender: FDA-Public Use
  Company Number: None

PATIENT
  Age: 48 Year
  Sex: Female
  Weight: 70.3075 kg

DRUGS (2)
  1. XANAX [Suspect]
     Indication: GENERALISED ANXIETY DISORDER
     Dates: start: 20011001, end: 20030620
  2. XANAX [Suspect]
     Indication: INSOMNIA
     Dates: start: 20011001, end: 20030620

REACTIONS (7)
  - ABNORMAL BEHAVIOUR [None]
  - AGITATION [None]
  - AMNESIA [None]
  - LOSS OF CONSCIOUSNESS [None]
  - PARANOIA [None]
  - SELF MUTILATION [None]
  - SUICIDAL IDEATION [None]
